FAERS Safety Report 5062163-7 (Version None)
Quarter: 2006Q3

REPORT INFORMATION
  Report Type: 
  Country: None (occurrence: None)
  Receive Date: 20060721
  Receipt Date: 20060710
  Transmission Date: 20061208
  Serious: Yes (Hospitalization, Other)
  Sender: FDA-Public Use
  Company Number: THQ2005A00807

PATIENT
  Age: 70 Year
  Sex: 0

DRUGS (3)
  1. LEUPROLIDE ACETATE [Suspect]
     Dosage: 22.5 MG (22.5 MG, 1 IN 3 M) INTRAMUSCULAR
     Route: 030
     Dates: start: 20041012, end: 20050110
  2. ZOLEDRONIC ACID [Suspect]
     Dosage: 4.0 MG/100 ML) INTRAVENOUS
     Route: 042
     Dates: start: 20041018, end: 20050818
  3. ATENOLOL [Suspect]
     Indication: HYPERTENSION
     Dosage: 50 MG
     Dates: end: 20051024

REACTIONS (13)
  - ARTHROPATHY [None]
  - BONE FRAGMENTATION [None]
  - BRADYCARDIA [None]
  - EXCORIATION [None]
  - FACE INJURY [None]
  - FALL [None]
  - GINGIVAL PAIN [None]
  - HEAD INJURY [None]
  - HYPOTENSION [None]
  - OSTEONECROSIS [None]
  - PAIN IN JAW [None]
  - SCRATCH [None]
  - SYNCOPE [None]
